FAERS Safety Report 5762078-2 (Version None)
Quarter: 2008Q2

REPORT INFORMATION
  Report Type: 
  Country: None (occurrence: None)
  Receive Date: 20080604
  Receipt Date: 20080526
  Transmission Date: 20081010
  Serious: Yes (Other)
  Sender: FDA-Public Use
  Company Number: 2007AP000708

PATIENT
  Age: 18 Year
  Sex: Female

DRUGS (9)
  1. PAROXETINE HCL [Suspect]
     Indication: DRUG USE FOR UNKNOWN INDICATION
     Dosage: 5 MG; PO; 10 MG; PO; 20 MG; PO ; 5 MG; PO QD; 30 MG; PO
     Route: 048
     Dates: end: 20060815
  2. PAROXETINE HCL [Suspect]
     Indication: DRUG USE FOR UNKNOWN INDICATION
     Dosage: 5 MG; PO; 10 MG; PO; 20 MG; PO ; 5 MG; PO QD; 30 MG; PO
     Route: 048
     Dates: end: 20061108
  3. PAROXETINE HCL [Suspect]
     Indication: DRUG USE FOR UNKNOWN INDICATION
     Dosage: 5 MG; PO; 10 MG; PO; 20 MG; PO ; 5 MG; PO QD; 30 MG; PO
     Route: 048
     Dates: start: 19970528
  4. PAROXETINE HCL [Suspect]
     Indication: DRUG USE FOR UNKNOWN INDICATION
     Dosage: 5 MG; PO; 10 MG; PO; 20 MG; PO ; 5 MG; PO QD; 30 MG; PO
     Route: 048
     Dates: start: 19980416
  5. PAROXETINE HCL [Suspect]
     Indication: DRUG USE FOR UNKNOWN INDICATION
     Dosage: 5 MG; PO; 10 MG; PO; 20 MG; PO ; 5 MG; PO QD; 30 MG; PO
     Route: 048
     Dates: start: 20050819
  6. PAROXETINE HCL [Suspect]
     Indication: DRUG USE FOR UNKNOWN INDICATION
     Dosage: 5 MG; PO; 10 MG; PO; 20 MG; PO ; 5 MG; PO QD; 30 MG; PO
     Route: 048
     Dates: start: 20060814
  7. CITALOPRAM HYDROBROMIDE [Concomitant]
  8. DIAZEPAM [Concomitant]
  9. VENLAFAXINE HCL [Concomitant]

REACTIONS (18)
  - ALCOHOL USE [None]
  - DEPERSONALISATION [None]
  - DEPRESSION [None]
  - DISTURBANCE IN ATTENTION [None]
  - DRUG INEFFECTIVE [None]
  - DRUG WITHDRAWAL SYNDROME [None]
  - FLAT AFFECT [None]
  - FRUSTRATION [None]
  - HYPERHIDROSIS [None]
  - INFLUENZA [None]
  - LETHARGY [None]
  - MALAISE [None]
  - MEMORY IMPAIRMENT [None]
  - MOOD SWINGS [None]
  - PALPITATIONS [None]
  - SUICIDAL IDEATION [None]
  - TEARFULNESS [None]
  - TREATMENT NONCOMPLIANCE [None]
